FAERS Safety Report 16969723 (Version 1)
Quarter: 2019Q4

REPORT INFORMATION
  Report Type: Spontaneous
  Country: IL (occurrence: IL)
  Receive Date: 20191029
  Receipt Date: 20191029
  Transmission Date: 20200122
  Serious: Yes (Other)
  Sender: FDA-Public Use
  Company Number: IL-ROCHE-2456674

PATIENT
  Age: 75 Year
  Sex: Female

DRUGS (1)
  1. AVASTIN [Suspect]
     Active Substance: BEVACIZUMAB
     Indication: RADIATION NECROSIS
     Route: 065
     Dates: start: 2015

REACTIONS (1)
  - Transient ischaemic attack [Unknown]
